FAERS Safety Report 15813691 (Version 1)
Quarter: 2019Q1

REPORT INFORMATION
  Report Type: Spontaneous
  Country: US (occurrence: US)
  Receive Date: 20190111
  Receipt Date: 20190111
  Transmission Date: 20190417
  Serious: No
  Sender: FDA-Public Use
  Company Number: US-BAYER-2019-006014

PATIENT
  Sex: Male

DRUGS (2)
  1. MIDOL EXTENDED RELIEF [Suspect]
     Active Substance: NAPROXEN SODIUM
     Indication: PAIN
     Dosage: UNK
     Route: 048
  2. MIDOL EXTENDED RELIEF [Suspect]
     Active Substance: NAPROXEN SODIUM
     Indication: MUSCLE SPASMS

REACTIONS (1)
  - Drug ineffective [Unknown]
